FAERS Safety Report 9341434 (Version 1)
Quarter: 2013Q2

REPORT INFORMATION
  Report Type: Spontaneous
  Country: US (occurrence: US)
  Receive Date: 20130611
  Receipt Date: 20130611
  Transmission Date: 20140414
  Serious: Yes (Disabling)
  Sender: FDA-Public Use
  Company Number: US-SANOFI-AVENTIS-2013SA057775

PATIENT
  Sex: Female

DRUGS (1)
  1. LANTUS [Suspect]
     Dates: start: 2009

REACTIONS (1)
  - Disability [Unknown]
